FAERS Safety Report 15209347 (Version 4)
Quarter: 2018Q4

REPORT INFORMATION
  Report Type: Report from Study
  Country: None (occurrence: CH)
  Receive Date: 20180727
  Receipt Date: 20181119
  Transmission Date: 20190204
  Serious: Yes (Hospitalization)
  Sender: FDA-Public Use
  Company Number: CH-ABBVIE-18S-151-2424665-00

PATIENT
  Sex: Female

DRUGS (5)
  1. DUODOPA [Suspect]
     Active Substance: CARBIDOPA\LEVODOPA
     Dosage: 24H THERAPY, MD: 3ML CD DAY: 1.9ML/H CD NIGHT: 1.4ML/H ED: 0ML
     Route: 050
     Dates: start: 20180327, end: 20180418
  2. DUODOPA [Suspect]
     Active Substance: CARBIDOPA\LEVODOPA
     Dosage: 24H THERAPY, MD: 3ML, CD DAY: 2ML/H, CD NIGHT: 1.4ML/H, ED: 1.5ML DISCONTINUED
     Route: 050
     Dates: start: 20180418, end: 20180719
  3. DUODOPA [Suspect]
     Active Substance: CARBIDOPA\LEVODOPA
     Indication: PARKINSON^S DISEASE
     Route: 050
     Dates: start: 20100512
  4. DUODOPA [Suspect]
     Active Substance: CARBIDOPA\LEVODOPA
     Route: 050
     Dates: end: 20180327
  5. DUODOPA [Suspect]
     Active Substance: CARBIDOPA\LEVODOPA
     Dosage: RESTARTED, MD: 3ML CD DAY: 2ML/H CD NIGHT: 1.4ML/H ED: 1.5ML
     Route: 050
     Dates: start: 20180719

REACTIONS (13)
  - Device dislocation [Recovered/Resolved]
  - Stoma complication [Recovered/Resolved]
  - Stoma site irritation [Recovered/Resolved]
  - Stoma site erythema [Recovering/Resolving]
  - Urinary tract infection [Unknown]
  - On and off phenomenon [Unknown]
  - Stoma site inflammation [Recovered/Resolved]
  - Anxiety [Unknown]
  - Stoma site reaction [Recovered/Resolved]
  - Akinesia [Recovered/Resolved]
  - Stoma site pain [Recovered/Resolved]
  - Skin fibrosis [Recovered/Resolved]
  - Dysphagia [Recovered/Resolved]

NARRATIVE: CASE EVENT DATE: 2018
